FAERS Safety Report 20256338 (Version 1)
Quarter: 2021Q4

REPORT INFORMATION
  Report Type: Spontaneous
  Country: US (occurrence: US)
  Receive Date: 20211230
  Receipt Date: 20211230
  Transmission Date: 20220304
  Serious: Yes (Other)
  Sender: FDA-Public Use
  Company Number: US-PURDUE-USA-2020-0230083

PATIENT
  Age: 72 Year
  Sex: Female

DRUGS (3)
  1. OXYCONTIN [Suspect]
     Active Substance: OXYCODONE HYDROCHLORIDE
     Indication: Pain management
     Dosage: 40 MG, UNKNOWN
     Route: 048
     Dates: start: 1996
  2. OXYCONTIN [Suspect]
     Active Substance: OXYCODONE HYDROCHLORIDE
     Dosage: 20 MG, UNKNOWN
     Route: 048
  3. OXYCONTIN [Suspect]
     Active Substance: OXYCODONE HYDROCHLORIDE
     Dosage: 80 MG, UNKNOWN
     Route: 048

REACTIONS (4)
  - Drug dependence [Unknown]
  - Anxiety [Unknown]
  - Panic attack [Unknown]
  - Depression [Unknown]
